FAERS Safety Report 5317630-5 (Version None)
Quarter: 2007Q2

REPORT INFORMATION
  Report Type: 
  Country: None (occurrence: None)
  Receive Date: 20070507
  Receipt Date: 20070502
  Transmission Date: 20071010
  Serious: Yes (Death)
  Sender: FDA-Public Use
  Company Number: GB-JNJFOC-20070202479

PATIENT
  Age: 88 Year
  Sex: Female

DRUGS (13)
  1. DURAGESIC-50 [Suspect]
     Indication: PAIN
     Route: 062
  2. MESALAZINE [Concomitant]
     Route: 048
  3. OMEPRAZOLE [Concomitant]
     Route: 048
  4. FOLIC ACID [Concomitant]
     Route: 048
  5. FERROUS SULFATE TAB [Concomitant]
  6. PARACETAMOL [Concomitant]
     Route: 048
  7. ADCAL-D3 [Concomitant]
     Route: 048
  8. SENNA [Concomitant]
     Route: 048
  9. PREDNISOLONE [Concomitant]
     Route: 048
  10. PREDNISOLONE [Concomitant]
     Route: 048
  11. RAMIPRIL [Concomitant]
     Route: 048
  12. ORAMORPH SR [Concomitant]
     Route: 048
  13. ASPIRIN [Concomitant]
     Route: 048

REACTIONS (2)
  - DRUG DISPENSING ERROR [None]
  - GENERAL PHYSICAL HEALTH DETERIORATION [None]
